FAERS Safety Report 13673061 (Version 1)
Quarter: 2017Q2

REPORT INFORMATION
  Report Type: Spontaneous
  Country: US (occurrence: US)
  Receive Date: 20170621
  Receipt Date: 20170621
  Transmission Date: 20170830
  Serious: Yes (Hospitalization)
  Sender: FDA-Public Use
  Company Number: US-IMPAX LABORATORIES, INC-2017-IPXL-01783

PATIENT
  Age: 47 Year
  Sex: Female

DRUGS (2)
  1. BUPROPION HYDROCHLORIDE EXTENDED-RELEASE [Suspect]
     Active Substance: BUPROPION HYDROCHLORIDE
     Indication: SUICIDE ATTEMPT
     Dosage: 10 CAPSULES OF 150 MG, UNK
     Route: 065
  2. ALPRAZOLAM ER [Suspect]
     Active Substance: ALPRAZOLAM
     Indication: PRODUCT USED FOR UNKNOWN INDICATION
     Dosage: UNK
     Route: 065

REACTIONS (6)
  - Respiratory arrest [Recovered/Resolved]
  - Intentional overdose [Recovered/Resolved]
  - Cardiac arrest [Recovered/Resolved]
  - Mydriasis [Recovered/Resolved]
  - Generalised tonic-clonic seizure [Recovered/Resolved]
  - Suicide attempt [Recovered/Resolved]
